FAERS Safety Report 8946836 (Version 2)
Quarter: 2013Q3

REPORT INFORMATION
  Report Type: Spontaneous
  Country: US (occurrence: US)
  Receive Date: 20121205
  Receipt Date: 20130813
  Transmission Date: 20140515
  Serious: Yes (Other)
  Sender: FDA-Public Use
  Company Number: CHPA2012US024216

PATIENT
  Age: 80 Year
  Sex: Female

DRUGS (1)
  1. EXCEDRIN EXTRA STRENGTH [Suspect]
     Indication: PAIN
     Dosage: 2 DF, QD
     Route: 048

REACTIONS (3)
  - Bone disorder [Not Recovered/Not Resolved]
  - Incorrect drug administration duration [Unknown]
  - Therapeutic response decreased [Unknown]
